FAERS Safety Report 23724213 (Version 2)
Quarter: 2024Q2

REPORT INFORMATION
  Report Type: Spontaneous
  Country: ES (occurrence: ES)
  Receive Date: 20240409
  Receipt Date: 20240412
  Transmission Date: 20240716
  Serious: Yes (Hospitalization)
  Sender: FDA-Public Use
  Company Number: None

PATIENT
  Age: 62 Year
  Sex: Female

DRUGS (3)
  1. DICLOFENAC [Suspect]
     Active Substance: DICLOFENAC
     Indication: Product used for unknown indication
     Dosage: DICLOFENACO (745A)
     Route: 061
     Dates: start: 20230419, end: 20230419
  2. ACETAMINOPHEN [Concomitant]
     Active Substance: ACETAMINOPHEN
     Indication: Product used for unknown indication
     Dosage: PARACETAMOL (12A)
     Route: 048
     Dates: start: 20230420, end: 20230420
  3. GINKGO [Suspect]
     Active Substance: GINKGO
     Indication: Product used for unknown indication
     Dosage: GINKGO BILOBA (3270A)
     Route: 065
     Dates: start: 20230316, end: 20230322

REACTIONS (1)
  - Toxic epidermal necrolysis [Recovered/Resolved]

NARRATIVE: CASE EVENT DATE: 20230421
